FAERS Safety Report 5593309-X (Version None)
Quarter: 2008Q1

REPORT INFORMATION
  Report Type: 
  Country: None (occurrence: None)
  Receive Date: 20080116
  Receipt Date: 20080115
  Transmission Date: 20080703
  Serious: Yes (Other)
  Sender: FDA-Public Use
  Company Number: B0500213A

PATIENT
  Age: 8 Year
  Sex: Female
  Weight: 27 kg

DRUGS (6)
  1. RELENZA [Suspect]
     Indication: INFLUENZA
     Dosage: 10MG PER DAY
     Route: 055
     Dates: start: 20071213, end: 20071213
  2. COCARL [Concomitant]
     Indication: INFLUENZA
     Route: 048
     Dates: start: 20071212, end: 20071212
  3. PERIACTIN [Concomitant]
     Indication: INFLUENZA
     Route: 048
     Dates: start: 20071212, end: 20071212
  4. ASVERIN [Concomitant]
     Indication: INFLUENZA
     Route: 048
     Dates: start: 20071212, end: 20071212
  5. MUCODYNE [Concomitant]
     Indication: INFLUENZA
     Route: 048
     Dates: start: 20071212, end: 20071212
  6. UNKNOWN DRUG [Concomitant]
     Indication: INFLUENZA
     Dosage: 200MG TWICE PER DAY
     Route: 054
     Dates: start: 20071213, end: 20071213

REACTIONS (6)
  - ABNORMAL BEHAVIOUR [None]
  - DELIRIUM [None]
  - DIZZINESS [None]
  - DYSKINESIA [None]
  - LOSS OF CONTROL OF LEGS [None]
  - PYREXIA [None]
